FAERS Safety Report 5463872-8 (Version None)
Quarter: 2007Q3

REPORT INFORMATION
  Report Type: 
  Country: None (occurrence: None)
  Receive Date: 20070712
  Receipt Date: 20061011
  Transmission Date: 20080115
  Serious: Yes (Hospitalization)
  Sender: FDA-Public Use
  Company Number: 200610761

PATIENT
  Age: 46 Year
  Sex: Female
  Weight: 113.3993 kg

DRUGS (7)
  1. CARIMUNE NF (CSL BEHRING) [Suspect]
     Indication: MYASTHENIA GRAVIS CRISIS
     Dosage: 72 G DAILY IV; 48 G DAILY IV; 72 G DAILY IV; 60 G DAILY IV; 72 G DAILY IV; 72 G DAILY IV; 72 G DAILY
     Route: 042
     Dates: start: 20060712, end: 20060712
  2. CARIMUNE NF (CSL BEHRING) [Suspect]
     Indication: MYASTHENIA GRAVIS CRISIS
     Dosage: 72 G DAILY IV; 48 G DAILY IV; 72 G DAILY IV; 60 G DAILY IV; 72 G DAILY IV; 72 G DAILY IV; 72 G DAILY
     Route: 042
     Dates: start: 20060718, end: 20060718
  3. CARIMUNE NF (CSL BEHRING) [Suspect]
     Indication: MYASTHENIA GRAVIS CRISIS
     Dosage: 72 G DAILY IV; 48 G DAILY IV; 72 G DAILY IV; 60 G DAILY IV; 72 G DAILY IV; 72 G DAILY IV; 72 G DAILY
     Route: 042
     Dates: start: 20060818, end: 20060818
  4. CARIMUNE NF (CSL BEHRING) [Suspect]
     Indication: MYASTHENIA GRAVIS CRISIS
     Dosage: 72 G DAILY IV; 48 G DAILY IV; 72 G DAILY IV; 60 G DAILY IV; 72 G DAILY IV; 72 G DAILY IV; 72 G DAILY
     Route: 042
     Dates: start: 20060912, end: 20060912
  5. CARIMUNE NF (CSL BEHRING) [Suspect]
     Indication: MYASTHENIA GRAVIS CRISIS
     Dosage: 72 G DAILY IV; 48 G DAILY IV; 72 G DAILY IV; 60 G DAILY IV; 72 G DAILY IV; 72 G DAILY IV; 72 G DAILY
     Route: 042
     Dates: start: 20060915, end: 20060915
  6. CARIMUNE NF (CSL BEHRING) [Suspect]
     Indication: MYASTHENIA GRAVIS CRISIS
     Dosage: 72 G DAILY IV; 48 G DAILY IV; 72 G DAILY IV; 60 G DAILY IV; 72 G DAILY IV; 72 G DAILY IV; 72 G DAILY
     Route: 042
     Dates: start: 20060916, end: 20060916
  7. CARIMUNE NF (CSL BEHRING) [Suspect]
     Indication: MYASTHENIA GRAVIS CRISIS
     Dosage: 72 G DAILY IV; 48 G DAILY IV; 72 G DAILY IV; 60 G DAILY IV; 72 G DAILY IV; 72 G DAILY IV; 72 G DAILY
     Route: 042
     Dates: start: 20061011, end: 20061011

REACTIONS (7)
  - CYANOSIS [None]
  - DYSPNOEA [None]
  - HYPERSENSITIVITY [None]
  - HYPERTENSION [None]
  - INJECTION SITE ERYTHEMA [None]
  - INJECTION SITE PRURITUS [None]
  - INJECTION SITE REACTION [None]
